FAERS Safety Report 22110982 (Version 6)
Quarter: 2025Q4

REPORT INFORMATION
  Report Type: Report from Study
  Country: US (occurrence: US)
  Receive Date: 20230317
  Receipt Date: 20251224
  Transmission Date: 20260118
  Serious: No
  Sender: PFIZER
  Company Number: US-PFIZER INC-PV202300032226

PATIENT
  Age: 71 Year
  Sex: Female

DRUGS (2)
  1. TIKOSYN [Suspect]
     Active Substance: DOFETILIDE
     Dosage: 250 UG, 2X/DAY
     Route: 048
  2. TIKOSYN [Suspect]
     Active Substance: DOFETILIDE
     Dosage: 125 UG, 2X/DAY (TAKE 2 CAPSULES BY MOUTH 2 TIMES A DAY)
     Route: 048
     Dates: start: 20251210

REACTIONS (1)
  - Loss of personal independence in daily activities [Unknown]

NARRATIVE: CASE EVENT DATE: 20230101
